FAERS Safety Report 12475942 (Version 1)
Quarter: 2016Q2

REPORT INFORMATION
  Report Type: Spontaneous
  Country: CA (occurrence: CA)
  Receive Date: 20160617
  Receipt Date: 20160617
  Transmission Date: 20160815
  Serious: Yes (Death)
  Sender: FDA-Public Use
  Company Number: CA-UCBSA-2015017562

PATIENT
  Sex: Female
  Weight: 76 kg

DRUGS (6)
  1. DEXAMETHASONE. [Concomitant]
     Active Substance: DEXAMETHASONE
     Indication: SPEECH DISORDER
     Dosage: 1 MG, ONCE DAILY (QD)
  2. KEPPRA [Suspect]
     Active Substance: LEVETIRACETAM
     Dosage: 1000 MG, UNK
  3. AVASTIN [Suspect]
     Active Substance: BEVACIZUMAB
     Indication: GLIOBLASTOMA
     Dosage: , DOSAGE FORM: SOLUTION INTRAVENOUS770 MG, EV 2 WEEKS(QOW)
     Route: 042
     Dates: start: 20150121, end: 2015
  4. DEXAMETHASONE. [Concomitant]
     Active Substance: DEXAMETHASONE
     Indication: LETHARGY
  5. AVASTIN [Suspect]
     Active Substance: BEVACIZUMAB
     Dosage: 700 MG, EV 2 WEEKS(QOW)
     Route: 042
     Dates: start: 2015
  6. KEPPRA [Suspect]
     Active Substance: LEVETIRACETAM
     Indication: PRODUCT USED FOR UNKNOWN INDICATION
     Dosage: 1500 MG, UNK

REACTIONS (10)
  - Lethargy [Recovering/Resolving]
  - Condition aggravated [Unknown]
  - Weight decreased [Unknown]
  - Drug ineffective [Unknown]
  - Speech disorder [Recovering/Resolving]
  - Body temperature decreased [Unknown]
  - Hemiparesis [Unknown]
  - Petechiae [Unknown]
  - Death [Fatal]
  - Mobility decreased [Unknown]

NARRATIVE: CASE EVENT DATE: 2015
